FAERS Safety Report 8433530-6 (Version None)
Quarter: 2012Q2

REPORT INFORMATION
  Report Type: 
  Country: None (occurrence: None)
  Receive Date: 20120323
  Receipt Date: 20111110
  Transmission Date: 20120825
  Serious: Yes (Disabling)
  Sender: FDA-Public Use
  Company Number: 163-21880-11071434

PATIENT
  Age: 87 Year
  Sex: Female

DRUGS (13)
  1. SYNTHROID [Concomitant]
  2. METOPROLOL SUCCINATE [Concomitant]
  3. BENICAR [Concomitant]
  4. DOXAZOSIN MESYLATE [Concomitant]
  5. GABAPENTIN [Concomitant]
  6. ZOLPIDEM [Concomitant]
  7. GLYBURIDE [Concomitant]
  8. JANUVIA [Concomitant]
  9. PREDNISONE TAB [Concomitant]
  10. REVLIMID [Suspect]
     Indication: MYELODYSPLASTIC SYNDROME
     Dosage: 5 MG, 1 IN 1 D, PO
     Dates: start: 20110613, end: 20110626
  11. ACTOS [Concomitant]
  12. ACETAMINOPHEN [Concomitant]
  13. NORVASC [Concomitant]

REACTIONS (2)
  - PAIN [None]
  - ASTHENIA [None]
